FAERS Safety Report 10016320 (Version 1)
Quarter: 2014Q1

REPORT INFORMATION
  Report Type: Spontaneous
  Country: US (occurrence: US)
  Receive Date: 20140317
  Receipt Date: 20140317
  Transmission Date: 20141002
  Serious: No
  Sender: FDA-Public Use
  Company Number: US-PFIZER INC-2014074782

PATIENT
  Age: 60 Year
  Sex: Female
  Weight: 99.77 kg

DRUGS (1)
  1. GABAPENTIN [Suspect]
     Indication: DIABETIC NEUROPATHY
     Dosage: 100 MG, 2X/DAY

REACTIONS (2)
  - Blood potassium increased [Unknown]
  - Drug ineffective [Unknown]
